FAERS Safety Report 23134685 (Version 1)
Quarter: 2023Q4

REPORT INFORMATION
  Report Type: Spontaneous
  Country: CA (occurrence: None)
  Receive Date: 20231031
  Receipt Date: 20231031
  Transmission Date: 20240109
  Serious: Yes (Other)
  Sender: FDA-Public Use
  Company Number: None

PATIENT
  Age: 61 Year
  Sex: Female
  Weight: 90.9 kg

DRUGS (10)
  1. MONTELUKAST [Suspect]
     Active Substance: MONTELUKAST SODIUM
     Indication: Mast cell activation syndrome
  2. SYNTHROID [Concomitant]
     Active Substance: LEVOTHYROXINE SODIUM
  3. NALTREXONE [Concomitant]
     Active Substance: NALTREXONE
  4. QUERCETIN [Concomitant]
     Active Substance: QUERCETIN
  5. Circuvein [Concomitant]
  6. VITAMIN D3 [Concomitant]
     Active Substance: CHOLECALCIFEROL
  7. Vit K2 [Concomitant]
  8. Mag Oxylate [Concomitant]
  9. Bell Blood Sugar Support [Concomitant]
  10. Chanca Piedra [Concomitant]

REACTIONS (4)
  - Insomnia [None]
  - Dementia [None]
  - Anxiety [None]
  - Memory impairment [None]

NARRATIVE: CASE EVENT DATE: 20231010
